FAERS Safety Report 4802147-4 (Version None)
Quarter: 2005Q4

REPORT INFORMATION
  Report Type: 
  Country: None (occurrence: None)
  Receive Date: 20051011
  Receipt Date: 20050928
  Transmission Date: 20060501
  Serious: Yes (Hospitalization, Other)
  Sender: FDA-Public Use
  Company Number: 2005135192

PATIENT
  Age: 79 Year
  Sex: Female
  Weight: 60.3284 kg

DRUGS (1)
  1. CELEBREX [Suspect]
     Indication: ARTHRITIS
     Dosage: 200 MG (200 MG, 1 IN 1 D)

REACTIONS (7)
  - APHONIA [None]
  - ARTHROPATHY [None]
  - HEART RATE DECREASED [None]
  - HYPERTENSION [None]
  - LIMB OPERATION [None]
  - LOWER LIMB FRACTURE [None]
  - PAIN [None]
